FAERS Safety Report 5253180-2 (Version None)
Quarter: 2007Q1

REPORT INFORMATION
  Report Type: 
  Country: None (occurrence: None)
  Receive Date: 20070301
  Receipt Date: 20070219
  Transmission Date: 20070707
  Serious: Yes (Hospitalization, Other)
  Sender: FDA-Public Use
  Company Number: PHEH2007US02291

PATIENT
  Age: 53 Year
  Sex: Female
  Weight: 61.678 kg

DRUGS (15)
  1. TENORMIN [Concomitant]
     Indication: TACHYCARDIA
     Dosage: UNK, UNK
     Dates: start: 19840101
  2. FUROSEMIDE [Concomitant]
     Indication: FLUID RETENTION
  3. VASOTEC [Concomitant]
     Indication: HYPERTENSION
  4. CELEBREX [Concomitant]
     Indication: ARTHRITIS
  5. PREVACID [Concomitant]
     Indication: STOMACH DISCOMFORT
  6. AMBIEN [Concomitant]
     Indication: INSOMNIA
  7. VALIUM [Concomitant]
     Indication: STRESS
  8. DARVOCET-N 100 [Concomitant]
     Indication: MUSCULOSKELETAL DISCOMFORT
  9. ESTRADERM [Suspect]
     Indication: HORMONE REPLACEMENT THERAPY
  10. OGEN [Suspect]
     Indication: HORMONE REPLACEMENT THERAPY
     Dates: end: 19940101
  11. PROVERA [Suspect]
     Indication: HORMONE REPLACEMENT THERAPY
     Dates: start: 19870101, end: 19940101
  12. TAMOXIFEN CITRATE [Concomitant]
     Dosage: 10 MG, BID
     Route: 048
  13. CYTOXAN [Concomitant]
  14. ADRIAMYCIN PFS [Concomitant]
  15. FLUOROURACIL [Concomitant]

REACTIONS (17)
  - BREAST CANCER FEMALE [None]
  - BREAST PROSTHESIS IMPLANTATION [None]
  - BREAST RECONSTRUCTION [None]
  - CELLULITIS [None]
  - DEPRESSION [None]
  - ERYTHEMA [None]
  - HIP ARTHROPLASTY [None]
  - IMPLANT SITE EFFUSION [None]
  - KNEE ARTHROPLASTY [None]
  - LYMPHADENECTOMY [None]
  - LYMPHOEDEMA [None]
  - MASTECTOMY [None]
  - MECHANICAL COMPLICATION OF IMPLANT [None]
  - OESTROGEN RECEPTOR ASSAY POSITIVE [None]
  - OSTEOARTHRITIS [None]
  - SWELLING [None]
  - TENDERNESS [None]
